FAERS Safety Report 6657927-X (Version None)
Quarter: 2010Q1

REPORT INFORMATION
  Report Type: 
  Country: None (occurrence: None)
  Receive Date: 20100330
  Receipt Date: 20100318
  Transmission Date: 20100710
  Serious: Yes (Other)
  Sender: FDA-Public Use
  Company Number: DE-ROCHE-693404

PATIENT
  Sex: Male
  Weight: 66 kg

DRUGS (2)
  1. PEG-INTERFERON A-2A (RO 25-8310) [Suspect]
     Route: 058
     Dates: start: 20090910
  2. RIBAVIRIN [Suspect]
     Route: 048
     Dates: start: 20090910

REACTIONS (2)
  - PERIODONTITIS [None]
  - TOOTH LOSS [None]
